FAERS Safety Report 13179855 (Version 3)
Quarter: 2017Q2

REPORT INFORMATION
  Report Type: Spontaneous
  Country: US (occurrence: US)
  Receive Date: 20170202
  Receipt Date: 20170518
  Transmission Date: 20170830
  Serious: Yes (Hospitalization)
  Sender: FDA-Public Use
  Company Number: US-ASTRAZENECA-2017SE09975

PATIENT
  Age: 17040 Day
  Sex: Female
  Weight: 114.2 kg

DRUGS (14)
  1. IBUPROFEN. [Concomitant]
     Active Substance: IBUPROFEN
     Indication: PAIN
     Dosage: TAKE 1 TABLET (800MG) BY ORAL ROUTE UP TO 3 TIMES PER DAY WITH FOOD AS NEEDED
     Route: 048
  2. HUMALOG [Concomitant]
     Active Substance: INSULIN LISPRO
     Indication: DIABETES MELLITUS
     Route: 058
  3. PROBIOTIC [Concomitant]
     Active Substance: PROBIOTICS NOS
  4. LEXAPRO [Concomitant]
     Active Substance: ESCITALOPRAM OXALATE
     Route: 048
  5. FLONASE [Concomitant]
     Active Substance: FLUTICASONE PROPIONATE
     Dosage: SPRAY 1 - 2 SPRAY BY INTRANASAL ROUTE EVERY DAY IN EACH NOSTRIL AS NEEDED
     Route: 045
  6. FARXIGA [Suspect]
     Active Substance: DAPAGLIFLOZIN PROPANEDIOL
     Indication: TYPE 2 DIABETES MELLITUS
     Route: 048
     Dates: start: 2015, end: 20170106
  7. VANCOMYCIN [Concomitant]
     Active Substance: VANCOMYCIN
  8. ALPRAZOLAM. [Concomitant]
     Active Substance: ALPRAZOLAM
     Indication: ANXIETY
  9. IRON [Concomitant]
     Active Substance: IRON
     Dosage: 325 MG (65 MG IRON)
  10. XANAX [Concomitant]
     Active Substance: ALPRAZOLAM
     Indication: ANXIETY
     Dosage: TAKE 1 TABLET BY ORAL ROUTE UP TO EVERY 8 HOURS ONLY AS NEEDED
     Route: 048
  11. LISINOPRIL. [Suspect]
     Active Substance: LISINOPRIL
     Indication: HYPERTENSION
     Route: 048
  12. PERCOCET [Concomitant]
     Active Substance: ACETAMINOPHEN\OXYCODONE HYDROCHLORIDE
     Indication: PAIN
     Dosage: 5 MG-325 MG TAKE 1 TABLET BY ORAL ROUTE EVERY 6 HOURS AS NEEDED
  13. LANTUS SOLOSTAR [Concomitant]
     Active Substance: INSULIN GLARGINE
     Indication: DIABETES MELLITUS
     Dosage: INJECT 45 - 70 UNIT BY SUBCUTANEOUS ROUTE EVERY BEDTIME AS DIRECTED
     Route: 058
  14. ZOVIRAX [Concomitant]
     Active Substance: ACYCLOVIR
     Dosage: APPLY BY TOPICAL ROUTE 5 TIMES EVERY DAY TO THE AFFECTED AREAS
     Route: 061

REACTIONS (17)
  - Multiple allergies [Unknown]
  - Clostridium difficile colitis [Unknown]
  - Pulmonary mass [Unknown]
  - Spleen disorder [Unknown]
  - Umbilical hernia [Unknown]
  - Cholelithiasis [Unknown]
  - Nephrolithiasis [Unknown]
  - Type V hyperlipidaemia [Unknown]
  - Diabetic ketoacidosis [Recovered/Resolved]
  - Obesity [Unknown]
  - Myofascial spasm [Unknown]
  - Diabetes mellitus inadequate control [Unknown]
  - Gastroenteritis [Unknown]
  - Splenic artery aneurysm [Unknown]
  - Anxiety [Unknown]
  - Granulocytosis [Unknown]
  - Spinal osteoarthritis [Unknown]

NARRATIVE: CASE EVENT DATE: 20170106
